FAERS Safety Report 22651043 (Version 1)
Quarter: 2023Q2

REPORT INFORMATION
  Report Type: Spontaneous
  Country: CN (occurrence: CN)
  Receive Date: 20230628
  Receipt Date: 20230628
  Transmission Date: 20230722
  Serious: Yes (Hospitalization)
  Sender: FDA-Public Use
  Company Number: CN-BAYER-2023A086238

PATIENT
  Age: 53 Year
  Sex: Male
  Weight: 62 kg

DRUGS (2)
  1. STIVARGA [Suspect]
     Active Substance: REGORAFENIB
     Indication: Colon cancer
     Dosage: 80 MG, QD
     Route: 048
     Dates: start: 20230522, end: 20230531
  2. SINTILIMAB [Suspect]
     Active Substance: SINTILIMAB
     Dosage: 200 MG, QD
     Route: 041
     Dates: start: 20230522, end: 20230522

REACTIONS (7)
  - Dermatitis [Recovering/Resolving]
  - Rash [Recovering/Resolving]
  - Skin ulcer [None]
  - Oral disorder [Recovering/Resolving]
  - Erythema [None]
  - Skin swelling [None]
  - Off label use [None]

NARRATIVE: CASE EVENT DATE: 20230501
